FAERS Safety Report 8262042-8 (Version None)
Quarter: 2012Q2

REPORT INFORMATION
  Report Type: 
  Country: None (occurrence: None)
  Receive Date: 20120405
  Receipt Date: 20120323
  Transmission Date: 20120825
  Serious: Yes (Hospitalization, Other)
  Sender: FDA-Public Use
  Company Number: PHEH2012US002541

PATIENT
  Sex: Female

DRUGS (11)
  1. NAPROXEN [Concomitant]
     Dosage: 375 MG QD
  2. TOPROL-XL [Concomitant]
     Dosage: 100 MG QD
  3. CENTRUM [Concomitant]
     Dosage: UNK UKN, QD
  4. HEPARIN [Concomitant]
  5. CIPROFLOXACIN [Concomitant]
     Dosage: UNK UKN, QD
  6. NEXIUM [Concomitant]
     Dosage: 40 MG QD
  7. M.V.I. [Concomitant]
  8. NORCO [Concomitant]
  9. ASPIRIN [Concomitant]
     Dosage: 81 MG QD
  10. GLEEVEC [Suspect]
     Indication: CHRONIC MYELOID LEUKAEMIA
     Dosage: 400 MG, DAILY
     Route: 048
     Dates: start: 20111010
  11. PLAVIX [Concomitant]
     Dosage: 75 MG QD

REACTIONS (11)
  - STAPHYLOCOCCAL INFECTION [None]
  - SUBCUTANEOUS ABSCESS [None]
  - PAIN IN EXTREMITY [None]
  - BREAST CELLULITIS [None]
  - THYROID DISORDER [None]
  - BREAST TENDERNESS [None]
  - ERYTHEMA [None]
  - PYREXIA [None]
  - CHILLS [None]
  - RENAL FAILURE ACUTE [None]
  - BLOOD PRESSURE SYSTOLIC INCREASED [None]
